FAERS Safety Report 25861464 (Version 2)
Quarter: 2025Q4

REPORT INFORMATION
  Report Type: Report from Study
  Country: US (occurrence: US)
  Receive Date: 20250929
  Receipt Date: 20251011
  Transmission Date: 20260118
  Serious: Yes (Other)
  Sender: ABBVIE
  Company Number: US-ABBVIE-6478400

PATIENT
  Age: 67 Year
  Sex: Female
  Weight: 58.966 kg

DRUGS (1)
  1. RESTASIS [Suspect]
     Active Substance: CYCLOSPORINE
     Indication: Dry eye
     Dosage: APPLY AT NIGHT
     Route: 047
     Dates: start: 2020

REACTIONS (4)
  - Squamous cell carcinoma of skin [Recovered/Resolved]
  - Eye pain [Recovering/Resolving]
  - Keratitis [Recovering/Resolving]
  - Dry eye [Recovering/Resolving]

NARRATIVE: CASE EVENT DATE: 20200101
